FAERS Safety Report 5562957-5 (Version None)
Quarter: 2007Q4

REPORT INFORMATION
  Report Type: 
  Country: None (occurrence: None)
  Receive Date: 20071217
  Receipt Date: 20071206
  Transmission Date: 20080405
  Serious: Yes (Hospitalization)
  Sender: FDA-Public Use
  Company Number: US-ROCHE-535376

PATIENT
  Age: 12 Year
  Sex: Female
  Weight: 79.4 kg

DRUGS (1)
  1. TAMIFLU [Suspect]
     Indication: VIRAL INFECTION
     Route: 048
     Dates: start: 20071110, end: 20071112

REACTIONS (2)
  - LEUKOPENIA [None]
  - LIVER FUNCTION TEST ABNORMAL [None]
